FAERS Safety Report 24162285 (Version 2)
Quarter: 2024Q3

REPORT INFORMATION
  Report Type: Spontaneous
  Country: US (occurrence: US)
  Receive Date: 20240801
  Receipt Date: 20240827
  Transmission Date: 20241017
  Serious: Yes (Death, Hospitalization)
  Sender: PFIZER
  Company Number: US-PFIZER INC-202400225967

PATIENT
  Age: 78 Year
  Sex: Male
  Weight: 68.04 kg

DRUGS (6)
  1. VYNDAMAX [Suspect]
     Active Substance: TAFAMIDIS
     Indication: Cardiac amyloidosis
     Dosage: UNK, DAILY
     Route: 048
     Dates: start: 2022, end: 2024
  2. LOSARTAN [Concomitant]
     Active Substance: LOSARTAN\LOSARTAN POTASSIUM
     Indication: Hypertension
     Dosage: 50 MG
  3. CITALOPRAM [Concomitant]
     Active Substance: CITALOPRAM\CITALOPRAM HYDROBROMIDE
     Indication: Depression
     Dosage: UNK, DAILY
  4. ATORVASTATIN [Concomitant]
     Active Substance: ATORVASTATIN
     Indication: Blood cholesterol increased
     Dosage: UNK, DAILY
  5. TAMSULOSIN HYDROCHLORIDE [Concomitant]
     Active Substance: TAMSULOSIN HYDROCHLORIDE
     Indication: Prostatomegaly
     Dosage: UNK, DAILY
  6. ELIQUIS [Concomitant]
     Active Substance: APIXABAN
     Indication: Atrial fibrillation
     Dosage: UNK, DAILY

REACTIONS (6)
  - Pneumonia aspiration [Fatal]
  - Seizure [Unknown]
  - Blood pressure decreased [Unknown]
  - Head injury [Unknown]
  - Concussion [Unknown]
  - Fall [Unknown]

NARRATIVE: CASE EVENT DATE: 20240621
